FAERS Safety Report 13259997 (Version 1)
Quarter: 2017Q1

REPORT INFORMATION
  Report Type: Spontaneous
  Country: US (occurrence: US)
  Receive Date: 20170222
  Receipt Date: 20170222
  Transmission Date: 20170428
  Serious: No
  Sender: FDA-Public Use
  Company Number: US-TEVA-645910USA

PATIENT
  Sex: Male

DRUGS (1)
  1. AMPHETAMINE W/DEXTROAMPHETAMINE [Suspect]
     Active Substance: AMPHETAMINE SULFATE\DEXTROAMPHETAMINE
     Indication: ATTENTION DEFICIT/HYPERACTIVITY DISORDER
     Route: 065
     Dates: start: 2014

REACTIONS (6)
  - Product measured potency issue [Unknown]
  - Drug effect variable [Unknown]
  - Drug effect incomplete [Unknown]
  - Somnolence [Unknown]
  - Intentional product misuse [Unknown]
  - Drug tolerance increased [Unknown]

NARRATIVE: CASE EVENT DATE: 201603
